FAERS Safety Report 17800147 (Version 1)
Quarter: 2020Q2

REPORT INFORMATION
  Report Type: Spontaneous
  Country: IT (occurrence: IT)
  Receive Date: 20200519
  Receipt Date: 20200519
  Transmission Date: 20200714
  Serious: Yes (Other)
  Sender: FDA-Public Use
  Company Number: IT-B.I. PHARMACEUTICALS,INC./RIDGEFIELD-2020-BI-024063

PATIENT
  Age: 68 Year
  Sex: Male

DRUGS (2)
  1. VARGATEF [Suspect]
     Active Substance: NINTEDANIB
     Indication: LUNG ADENOCARCINOMA
     Route: 065
     Dates: end: 201510
  2. DOCETAXEL. [Suspect]
     Active Substance: DOCETAXEL
     Indication: LUNG ADENOCARCINOMA
     Route: 065
     Dates: end: 201510

REACTIONS (5)
  - Disease progression [Unknown]
  - Asthenia [Unknown]
  - Diarrhoea [Unknown]
  - Lymphadenopathy [Unknown]
  - Metastases to lung [Unknown]

NARRATIVE: CASE EVENT DATE: 201506
